FAERS Safety Report 8961608 (Version 1)
Quarter: 2012Q4

REPORT INFORMATION
  Report Type: 
  Country: US (occurrence: US)
  Receive Date: 20121213
  Receipt Date: 20121213
  Transmission Date: 20130627
  Serious: No
  Sender: FDA-Public Use
  Company Number: US-ALLERGAN-1214414US

PATIENT
  Age: 77 Year
  Sex: Male

DRUGS (2)
  1. LUMIGAN� 0.01% [Suspect]
     Indication: INCREASED INTRAOCULAR PRESSURE
     Dosage: 2 Gtt, UNK
     Route: 047
     Dates: start: 2002
  2. COMBIGAN [Suspect]
     Indication: INCREASED INTRAOCULAR PRESSURE
     Dosage: 2 Gtt, qd
     Route: 047
     Dates: start: 2011

REACTIONS (7)
  - Urinary incontinence [Unknown]
  - Faecal incontinence [Unknown]
  - Catheter placement [Unknown]
  - Conjunctivitis [Not Recovered/Not Resolved]
  - Scleral hyperaemia [Not Recovered/Not Resolved]
  - Lacrimation increased [Not Recovered/Not Resolved]
  - Eye discharge [Not Recovered/Not Resolved]
